FAERS Safety Report 6019150-1 (Version None)
Quarter: 2008Q4

REPORT INFORMATION
  Report Type: 
  Country: None (occurrence: None)
  Receive Date: 20081224
  Receipt Date: 20081215
  Transmission Date: 20090506
  Serious: Yes (Death)
  Sender: FDA-Public Use
  Company Number: US-JNJFOC-20081205257

PATIENT
  Age: 44 Year
  Sex: Female

DRUGS (6)
  1. IBUPROFEN [Suspect]
     Indication: SUICIDE ATTEMPT
  2. ACETAMINOPHEN [Suspect]
  3. ACETAMINOPHEN [Suspect]
     Indication: SUICIDE ATTEMPT
  4. COCAINE [Suspect]
     Indication: SUICIDE ATTEMPT
  5. DILTIAZEM [Suspect]
     Indication: SUICIDE ATTEMPT
  6. HYDROXYZINE [Suspect]
     Indication: SUICIDE ATTEMPT

REACTIONS (1)
  - DRUG TOXICITY [None]
